FAERS Safety Report 16514887 (Version 1)
Quarter: 2019Q3

REPORT INFORMATION
  Report Type: Report from Study
  Country: IE (occurrence: IE)
  Receive Date: 20190702
  Receipt Date: 20190702
  Transmission Date: 20191004
  Serious: Yes (Death, Other)
  Sender: FDA-Public Use
  Company Number: IE-PFIZER INC-2019275611

PATIENT
  Age: 57 Year
  Sex: Male

DRUGS (21)
  1. WATER BACTERIOSTATIC [Suspect]
     Active Substance: WATER
     Dosage: LIPID BAG
     Route: 042
     Dates: start: 201902, end: 20190601
  2. SODIUM CHLORIDE. [Suspect]
     Active Substance: SODIUM CHLORIDE
     Indication: PARENTERAL NUTRITION
     Dosage: NON LIPID BAG
     Route: 042
     Dates: start: 201902, end: 20190601
  3. MAGNESIUM SULPHATE [MAGNESIUM SULFATE] [Suspect]
     Active Substance: MAGNESIUM SULFATE
     Dosage: LIPID BAG
     Route: 042
     Dates: start: 201902, end: 20190601
  4. CLINOLEIC [Suspect]
     Active Substance: OLIVE OIL\SOYBEAN OIL
     Indication: PARENTERAL NUTRITION
     Dosage: LIPID BAG
     Route: 042
     Dates: start: 201902, end: 20190601
  5. POTASSIUM CHLORIDE. [Suspect]
     Active Substance: POTASSIUM CHLORIDE
     Indication: PARENTERAL NUTRITION
     Dosage: LIPID BAG
     Route: 042
     Dates: start: 201902, end: 20190601
  6. WATER BACTERIOSTATIC [Suspect]
     Active Substance: WATER
     Dosage: NON LIPID BAG
     Route: 042
     Dates: start: 201902, end: 20190601
  7. WATER BACTERIOSTATIC [Suspect]
     Active Substance: WATER
     Dosage: NON LIPID BAG
     Route: 042
     Dates: start: 201902, end: 20190601
  8. SODIUM GLYCEROPHOSPHATE [Suspect]
     Active Substance: SODIUM GLYCEROPHOSPHATE
     Dosage: NON LIPID BAG
     Route: 042
     Dates: start: 201902, end: 20190601
  9. GLUCOSE [Suspect]
     Active Substance: DEXTROSE
     Indication: PARENTERAL NUTRITION
     Dosage: LIPID BAG
     Route: 042
     Dates: start: 201902, end: 20190601
  10. GLUCOSE [Suspect]
     Active Substance: DEXTROSE
     Dosage: NON LIPID BAG
     Route: 042
     Dates: start: 201902, end: 20190601
  11. CALCIUM CHLORIDE. [Suspect]
     Active Substance: CALCIUM CHLORIDE
     Dosage: LIPID BAG
     Route: 042
     Dates: start: 201902, end: 20190601
  12. CERNEVIT [Suspect]
     Active Substance: VITAMINS
     Dosage: LIPID BAG
     Route: 042
     Dates: start: 201902, end: 20190601
  13. WATER BACTERIOSTATIC [Suspect]
     Active Substance: WATER
     Indication: PARENTERAL NUTRITION
     Dosage: LIPID BAG
     Route: 042
     Dates: start: 201902, end: 20190601
  14. SYNTHAMIN [Suspect]
     Active Substance: AMINO ACIDS
     Indication: PARENTERAL NUTRITION
     Dosage: NON LIPID BAG
     Route: 042
     Dates: start: 201902, end: 20190601
  15. SYNTHAMIN [Suspect]
     Active Substance: AMINO ACIDS
     Dosage: LIPID BAG
     Route: 042
     Dates: start: 201902, end: 20190601
  16. MAGNESIUM SULPHATE [MAGNESIUM SULFATE] [Suspect]
     Active Substance: MAGNESIUM SULFATE
     Indication: PARENTERAL NUTRITION
     Dosage: NON LIPID BAG
     Route: 042
     Dates: start: 201902, end: 20190601
  17. POTASSIUM CHLORIDE. [Suspect]
     Active Substance: POTASSIUM CHLORIDE
     Dosage: NON LIPID BAG
     Route: 042
     Dates: start: 201902, end: 20190601
  18. SODIUM GLYCEROPHOSPHATE [Suspect]
     Active Substance: SODIUM GLYCEROPHOSPHATE
     Indication: PARENTERAL NUTRITION
     Dosage: LIPID BAG
     Route: 042
     Dates: start: 201902, end: 20190601
  19. CERNEVIT [Suspect]
     Active Substance: VITAMINS
     Indication: PARENTERAL NUTRITION
     Dosage: NON LIPID BAG
     Route: 042
     Dates: start: 201902, end: 20190601
  20. CALCIUM CHLORIDE. [Suspect]
     Active Substance: CALCIUM CHLORIDE
     Indication: PARENTERAL NUTRITION
     Dosage: NON LIPID BAG
     Route: 042
     Dates: start: 201902, end: 20190601
  21. SODIUM CHLORIDE. [Suspect]
     Active Substance: SODIUM CHLORIDE
     Dosage: LIPID BAG
     Route: 042
     Dates: start: 201902, end: 20190601

REACTIONS (5)
  - Blood sodium decreased [Unknown]
  - White blood cell count increased [Unknown]
  - Death [Fatal]
  - Renal impairment [Fatal]
  - Blood potassium decreased [Unknown]

NARRATIVE: CASE EVENT DATE: 20190520
